FAERS Safety Report 7148895-5 (Version None)
Quarter: 2010Q4

REPORT INFORMATION
  Report Type: 
  Country: None (occurrence: None)
  Receive Date: 20101209
  Receipt Date: 20101129
  Transmission Date: 20110411
  Serious: Yes (Disabling)
  Sender: FDA-Public Use
  Company Number: JP-SANOFI-AVENTIS-2010SA072075

PATIENT
  Age: 67 Year
  Sex: Male
  Weight: 70 kg

DRUGS (5)
  1. OXALIPLATIN [Suspect]
     Indication: COLON CANCER
     Route: 041
     Dates: start: 20100527, end: 20100527
  2. FLUOROURACIL [Suspect]
     Indication: COLON CANCER
     Route: 040
     Dates: start: 20100527, end: 20100527
  3. FLUOROURACIL [Suspect]
     Route: 041
     Dates: start: 20100527, end: 20100528
  4. CALCIUM LEVOFOLINATE [Suspect]
     Indication: COLON CANCER
     Route: 041
     Dates: start: 20100527, end: 20100527
  5. PRIMPERAN TAB [Concomitant]
     Indication: NAUSEA
     Route: 048

REACTIONS (1)
  - LEUKOENCEPHALOPATHY [None]
